FAERS Safety Report 23806555 (Version 1)
Quarter: 2024Q2

REPORT INFORMATION
  Report Type: Spontaneous
  Country: ES (occurrence: ES)
  Receive Date: 20240502
  Receipt Date: 20240502
  Transmission Date: 20240716
  Serious: Yes (Hospitalization)
  Sender: FDA-Public Use
  Company Number: None

PATIENT
  Age: 80 Year
  Sex: Male

DRUGS (9)
  1. DOXORUBICIN [Suspect]
     Active Substance: DOXORUBICIN
     Indication: Hodgkin^s disease
     Dosage: TIME INTERVAL: CYCLICAL: FROM 2ND CYCLE ON 07/13/2023 +1/+8 43MILLIGRAMS (25MG/M2) UNTIL COMPLETI...
     Route: 042
     Dates: start: 20230713, end: 20230921
  2. DOXORUBICIN [Suspect]
     Active Substance: DOXORUBICIN
     Indication: Hodgkin^s disease
     Dosage: TIME INTERVAL: CYCLICAL: 1ST CYCLE 06/15/2023 +1 86MILLIGRAMS (50MG/M2) NEUTROPENIA AND DETERIORA...
     Route: 042
     Dates: start: 20230615, end: 20230615
  3. DOXORUBICIN [Suspect]
     Active Substance: DOXORUBICIN
     Indication: Hodgkin^s disease
     Dosage: TIME INTERVAL: CYCLICAL: FROM THE 6TH CYCLE, AN ADJUSTMENT IS MADE FOR WORSENING OF THE DISEASE. ...
     Route: 042
     Dates: start: 20231017, end: 20231227
  4. RITUXIMAB [Suspect]
     Active Substance: RITUXIMAB
     Indication: Hodgkin^s disease
     Dosage: TIME INTERVAL: CYCLICAL: FROM THE 6TH CYCLE, AN ADJUSTMENT IS MADE DUE TO WORSENING OF THE DISEAS...
     Route: 042
     Dates: start: 20231017, end: 20231227
  5. RITUXIMAB [Suspect]
     Active Substance: RITUXIMAB
     Indication: Hodgkin^s disease
     Dosage: TIME INTERVAL: CYCLICAL: 06/15/2023 +1 645MILLIGRAMS (375MG/TOTAL), RITUXIMAB (2814A)
     Route: 065
     Dates: start: 20230615, end: 20230615
  6. RITUXIMAB [Suspect]
     Active Substance: RITUXIMAB
     Indication: Hodgkin^s disease
     Dosage: TIME INTERVAL: CYCLICAL: 2ND CYCLE ON 07/13/2023 +1 688MILLIGRAMS (400MG/TOTAL) UNTIL COMPLETING ...
     Route: 042
     Dates: start: 20230713, end: 20230921
  7. VINCRISTINE [Suspect]
     Active Substance: VINCRISTINE
     Indication: Diffuse large B-cell lymphoma stage II
     Dosage: TIME INTERVAL: CYCLICAL: FROM 2ND CYCLE ON 07/13/2023 +1 1MILLIGRAMS (1MG/M2) UNTIL COMPLETING 5 ...
     Route: 042
     Dates: start: 20230713, end: 20230921
  8. VINCRISTINE [Suspect]
     Active Substance: VINCRISTINE
     Indication: Diffuse large B-cell lymphoma stage II
     Dosage: TIME INTERVAL: CYCLICAL: 1ST CYCLE 06/15/2023 +1 2MILLIGRAMS (1.16MG/M2) NEUTROPENIA AND DETERIOR...
     Route: 017
     Dates: start: 20230615, end: 20230615
  9. VINCRISTINE [Suspect]
     Active Substance: VINCRISTINE
     Indication: Diffuse large B-cell lymphoma stage II
     Dosage: TIME INTERVAL: CYCLICAL: FROM THE 6TH CYCLE, AN ADJUSTMENT IS MADE FOR WORSENING OF THE DISEASE. ...
     Route: 042
     Dates: start: 20231017, end: 20231227

REACTIONS (2)
  - Febrile neutropenia [Recovered/Resolved]
  - Diarrhoea [Recovered/Resolved]

NARRATIVE: CASE EVENT DATE: 20240217
